FAERS Safety Report 7392719-8 (Version None)
Quarter: 2011Q2

REPORT INFORMATION
  Report Type: 
  Country: None (occurrence: None)
  Receive Date: 20110404
  Receipt Date: 20110330
  Transmission Date: 20111010
  Serious: Yes (Death, Life-Threatening, Hospitalization, Disabling)
  Sender: FDA-Public Use
  Company Number: JP-PFIZER INC-2011025270

PATIENT
  Age: 45 Year
  Sex: Male
  Weight: 57.5 kg

DRUGS (17)
  1. TEMSIROLIMUS [Suspect]
     Dosage: 25 MG, WEEKLY
     Dates: start: 20110119, end: 20110119
  2. FENTANYL [Concomitant]
     Dosage: 16.8 MG EVERY 3 DAYS
     Route: 061
     Dates: end: 20110115
  3. MAGNESIUM OXIDE [Concomitant]
     Indication: PROPHYLAXIS
     Dosage: 660 MG, 3X/DAY
     Route: 048
     Dates: end: 20110114
  4. THYRADIN S [Concomitant]
     Dosage: 25 UG, 1X/DAY
     Route: 048
     Dates: end: 20110106
  5. TEMSIROLIMUS [Suspect]
     Indication: RENAL CELL CARCINOMA
     Dosage: 25 MG, WEEKLY
     Route: 041
     Dates: start: 20110105, end: 20110105
  6. LASIX [Concomitant]
     Dosage: 40 MG, 1X/DAY
     Route: 048
     Dates: start: 20110122, end: 20110131
  7. TEMSIROLIMUS [Suspect]
     Dosage: 25 MG, WEEKLY
     Dates: start: 20110112, end: 20110112
  8. TEMSIROLIMUS [Suspect]
     Dosage: 25 MG, WEEKLY
     Dates: start: 20110126, end: 20110126
  9. FENTANYL [Concomitant]
     Dosage: 2.1 MG EVERY 3 DAYS
     Route: 061
     Dates: start: 20110106, end: 20110124
  10. LASIX [Concomitant]
     Dosage: 40 MG, 2X/DAY
     Route: 048
     Dates: end: 20110121
  11. ALDACTONE [Concomitant]
     Dosage: 25 MG, 1X/DAY
     Route: 048
     Dates: end: 20110131
  12. LOXONIN [Concomitant]
     Dosage: 60 MG, 3X/DAY
     Route: 048
     Dates: end: 20110131
  13. RESTAMIN [Concomitant]
     Indication: PROPHYLAXIS
     Dosage: 50 MG, 1X/DAY
     Route: 048
  14. FENTANYL [Concomitant]
     Dosage: 4.2 MG EVERY 3 DAYS
     Route: 061
     Dates: end: 20110106
  15. LYRICA [Concomitant]
     Dosage: 75 MG, 2X/DAY
     Route: 048
     Dates: end: 20110131
  16. GASTER [Concomitant]
     Indication: PROPHYLAXIS
     Dosage: 20 MG, 1X/DAY
     Route: 048
     Dates: end: 20110131
  17. PRIMPERAN TAB [Concomitant]
     Indication: PROPHYLAXIS
     Dosage: 5 MG, 3X/DAY
     Route: 048
     Dates: end: 20110131

REACTIONS (6)
  - DYSPNOEA [None]
  - METASTASES TO CENTRAL NERVOUS SYSTEM [None]
  - PLEURAL EFFUSION [None]
  - DISEASE PROGRESSION [None]
  - DIPLOPIA [None]
  - RENAL CELL CARCINOMA [None]
